FAERS Safety Report 10512597 (Version 2)
Quarter: 2014Q4

REPORT INFORMATION
  Report Type: Report from Study
  Country: DE (occurrence: DE)
  Receive Date: 20141011
  Receipt Date: 20141011
  Transmission Date: 20150528
  Serious: Yes (Hospitalization, Other)
  Sender: FDA-Public Use
  Company Number: DE-ABBVIE-14K-062-1273413-00

PATIENT
  Age: 43 Year
  Sex: Male

DRUGS (5)
  1. MESALAZINE [Concomitant]
     Active Substance: MESALAMINE
     Indication: PRODUCT USED FOR UNKNOWN INDICATION
  2. MESALAZINE [Concomitant]
     Active Substance: MESALAMINE
     Dosage: 1-0-1
  3. METOPROLOL [Concomitant]
     Active Substance: METOPROLOL
     Indication: PRODUCT USED FOR UNKNOWN INDICATION
     Dosage: 1-0-0
  4. HUMIRA [Suspect]
     Active Substance: ADALIMUMAB
     Indication: CROHN^S DISEASE
     Route: 058
     Dates: start: 2007
  5. PANTOPRAZOLE [Concomitant]
     Active Substance: PANTOPRAZOLE SODIUM
     Indication: PRODUCT USED FOR UNKNOWN INDICATION
     Dosage: 1-0-1

REACTIONS (21)
  - Adhesiolysis [Unknown]
  - Anastomotic ulcer [Unknown]
  - Haematochezia [Unknown]
  - Iron deficiency anaemia [Unknown]
  - Laparotomy [Unknown]
  - Device dislocation [Unknown]
  - Hypertrophic anal papilla [Unknown]
  - Intestinal haemorrhage [Recovered/Resolved]
  - Small intestinal stenosis [Unknown]
  - Coronary artery disease [Unknown]
  - Small intestinal resection [Unknown]
  - Jejunostomy [Unknown]
  - Ventricular fibrillation [Unknown]
  - Diarrhoea [Unknown]
  - Brugada syndrome [Unknown]
  - Nausea [Unknown]
  - Nausea [Unknown]
  - Stricturoplasty [Unknown]
  - Gastroenteritis [Unknown]
  - Crohn^s disease [Unknown]
  - Abdominal pain lower [Unknown]

NARRATIVE: CASE EVENT DATE: 2009
